FAERS Safety Report 17976294 (Version 3)
Quarter: 2021Q3

REPORT INFORMATION
  Report Type: Report from Study
  Country: US (occurrence: US)
  Receive Date: 20200702
  Receipt Date: 20210722
  Transmission Date: 20211014
  Serious: No
  Sender: FDA-Public Use
  Company Number: NVSC2020US187292

PATIENT
  Sex: Male

DRUGS (1)
  1. ZOLGENSMA [Suspect]
     Active Substance: ONASEMNOGENE ABEPARVOVEC-XIOI
     Indication: SPINAL MUSCULAR ATROPHY
     Dosage: UNK UNK, ONCE/SINGLE (1 UNIT)
     Route: 042
     Dates: start: 20200622

REACTIONS (5)
  - Vomiting [Recovered/Resolved]
  - Skin odour abnormal [Recovered/Resolved]
  - Torticollis [Unknown]
  - Grunting [Unknown]
  - Muscle tightness [Unknown]
